FAERS Safety Report 11096069 (Version 1)
Quarter: 2015Q2

REPORT INFORMATION
  Report Type: Spontaneous
  Country: FR (occurrence: None)
  Receive Date: 20150505
  Receipt Date: 20150505
  Transmission Date: 20150821
  Serious: Yes (Other)
  Sender: FDA-Public Use
  Company Number: 2848211

PATIENT
  Age: 83 Year
  Sex: Male

DRUGS (3)
  1. CLOPIDOGREL [Concomitant]
     Active Substance: CLOPIDOGREL BISULFATE
  2. FINASTERIDE. [Concomitant]
     Active Substance: FINASTERIDE
  3. GEMCITABINE HYDROCHLORIDE. [Suspect]
     Active Substance: GEMCITABINE HYDROCHLORIDE
     Indication: PANCREATIC CARCINOMA METASTATIC
     Dosage: 1000 MG/M2 MILLIGRAM(S)/SQ. METER (CYCLICAL) INTRAVENOUS DRIP
     Route: 041

REACTIONS (1)
  - Pulmonary veno-occlusive disease [None]
